FAERS Safety Report 17371296 (Version 1)
Quarter: 2020Q1

REPORT INFORMATION
  Report Type: Spontaneous
  Country: US (occurrence: US)
  Receive Date: 20200205
  Receipt Date: 20200205
  Transmission Date: 20200409
  Serious: No
  Sender: FDA-Public Use
  Company Number: US-LUPIN PHARMACEUTICALS INC.-2019-08515

PATIENT
  Sex: Male

DRUGS (2)
  1. OSELTAMIVIR PHOSPHATE CAPSULES USP, 75 MG (BASE) [Suspect]
     Active Substance: OSELTAMIVIR PHOSPHATE
     Indication: INFLUENZA
     Dosage: UNK UNK, BID
     Route: 048
     Dates: start: 20191122
  2. TYLENOL [Concomitant]
     Active Substance: ACETAMINOPHEN
     Indication: PRODUCT USED FOR UNKNOWN INDICATION
     Dosage: UNK
     Route: 065

REACTIONS (1)
  - Limb mass [Not Recovered/Not Resolved]

NARRATIVE: CASE EVENT DATE: 20191123
